FAERS Safety Report 12824494 (Version 1)
Quarter: 2016Q4

REPORT INFORMATION
  Report Type: Spontaneous
  Country: US (occurrence: US)
  Receive Date: 20161007
  Receipt Date: 20161007
  Transmission Date: 20170207
  Serious: No
  Sender: FDA-Public Use
  Company Number: US-BEH-2016074080

PATIENT
  Sex: Male
  Weight: 76.19 kg

DRUGS (19)
  1. MAGNESIUM [Concomitant]
     Active Substance: MAGNESIUM
  2. EPIPEN [Concomitant]
     Active Substance: EPINEPHRINE
  3. LISINOPRIL. [Concomitant]
     Active Substance: LISINOPRIL
  4. VANCOMYCIN [Concomitant]
     Active Substance: VANCOMYCIN
  5. PHOSLO [Concomitant]
     Active Substance: CALCIUM ACETATE
  6. PRIVIGEN [Suspect]
     Active Substance: HUMAN IMMUNOGLOBULIN G
     Indication: HYPOGAMMAGLOBULINAEMIA
     Dosage: UNK
     Route: 042
  7. SODIUM CHLORIDE. [Concomitant]
     Active Substance: SODIUM CHLORIDE
  8. PRIVIGEN [Suspect]
     Active Substance: HUMAN IMMUNOGLOBULIN G
     Dosage: 25 G, UNK
     Route: 042
     Dates: start: 20160301
  9. NEXIUM [Concomitant]
     Active Substance: ESOMEPRAZOLE MAGNESIUM
  10. GENTAMYCIN                         /00047101/ [Concomitant]
     Active Substance: GENTAMICIN
  11. STEROID ANTIBACTERIALS [Concomitant]
     Active Substance: UNSPECIFIED INGREDIENT
  12. PRIVIGEN [Suspect]
     Active Substance: HUMAN IMMUNOGLOBULIN G
     Dosage: UNK
     Route: 042
  13. DIPHENHYDRAMINE. [Concomitant]
     Active Substance: DIPHENHYDRAMINE
  14. FUROSEMIDE. [Concomitant]
     Active Substance: FUROSEMIDE
  15. PREDNISONE. [Concomitant]
     Active Substance: PREDNISONE
  16. ACETAMINOPHEN. [Concomitant]
     Active Substance: ACETAMINOPHEN
  17. COREG [Concomitant]
     Active Substance: CARVEDILOL
  18. BACTRIM [Concomitant]
     Active Substance: SULFAMETHOXAZOLE\TRIMETHOPRIM
  19. IMURAN [Concomitant]
     Active Substance: AZATHIOPRINE

REACTIONS (2)
  - Hypertension [Recovered/Resolved]
  - Infusion site swelling [Unknown]
